FAERS Safety Report 7057266-1 (Version None)
Quarter: 2010Q4

REPORT INFORMATION
  Report Type: 
  Country: None (occurrence: None)
  Receive Date: 20101022
  Receipt Date: 20101013
  Transmission Date: 20110411
  Serious: Yes (Other)
  Sender: FDA-Public Use
  Company Number: US-JNJFOC-20100805965

PATIENT
  Sex: Female

DRUGS (9)
  1. REMICADE [Suspect]
     Indication: RHEUMATOID ARTHRITIS
     Dosage: DOSE: 6 VIALS
     Route: 042
  2. REMICADE [Suspect]
     Route: 042
  3. ENBREL [Suspect]
     Indication: RHEUMATOID ARTHRITIS
  4. PREDNISONE [Concomitant]
     Indication: RHEUMATOID ARTHRITIS
  5. METHOTREXATE [Concomitant]
     Indication: RHEUMATOID ARTHRITIS
  6. SKELAXIN [Concomitant]
     Indication: MUSCLE RELAXANT THERAPY
  7. CELEBREX [Concomitant]
  8. PRILOSEC [Concomitant]
  9. LISINOPRIL [Concomitant]

REACTIONS (4)
  - DRUG INEFFECTIVE [None]
  - KNEE ARTHROPLASTY [None]
  - PSORIASIS [None]
  - RHEUMATOID ARTHRITIS [None]
